FAERS Safety Report 20237994 (Version 1)
Quarter: 2021Q4

REPORT INFORMATION
  Report Type: Spontaneous
  Country: US (occurrence: US)
  Receive Date: 20211228
  Receipt Date: 20211228
  Transmission Date: 20220303
  Serious: No
  Sender: FDA-Public Use
  Company Number: US-PERRIGO-21US001531

PATIENT
  Sex: Female

DRUGS (1)
  1. TIOCONAZOLE [Suspect]
     Active Substance: TIOCONAZOLE
     Indication: Vaginal infection
     Dosage: 300 MG, SINGLE
     Route: 067
     Dates: start: 20210123, end: 20210123

REACTIONS (1)
  - Condition aggravated [Not Recovered/Not Resolved]

NARRATIVE: CASE EVENT DATE: 20210123
